FAERS Safety Report 4511728-7 (Version None)
Quarter: 2004Q4

REPORT INFORMATION
  Report Type: 
  Country: None (occurrence: None)
  Receive Date: 20041129
  Receipt Date: 20041118
  Transmission Date: 20050328
  Serious: Yes (Other)
  Sender: FDA-Public Use
  Company Number: 200421491GDDC

PATIENT
  Age: 51 Year
  Sex: Female

DRUGS (5)
  1. LANTUS [Suspect]
     Indication: DIABETES MELLITUS
     Dosage: DOSE UNIT: UNITS
     Route: 058
     Dates: start: 20041010, end: 20041022
  2. AMARYL [Concomitant]
     Indication: DIABETES MELLITUS
     Route: 048
  3. VITAMIN B COMPLEX CAP [Concomitant]
     Indication: HYPERTENSION
     Route: 048
  4. COZAAR [Concomitant]
     Route: 048
  5. RAMIPRIL HYDROCHLOROTHIAZIDE [Concomitant]

REACTIONS (3)
  - MYALGIA [None]
  - RETINOPATHY [None]
  - THERAPEUTIC AGENT TOXICITY [None]
